FAERS Safety Report 5823237-3 (Version None)
Quarter: 2008Q3

REPORT INFORMATION
  Report Type: 
  Country: None (occurrence: None)
  Receive Date: 20080725
  Receipt Date: 20080417
  Transmission Date: 20090109
  Serious: No
  Sender: FDA-Public Use
  Company Number: A0723446A

PATIENT
  Sex: Male

DRUGS (1)
  1. DYAZIDE [Suspect]
     Dosage: 37.5MG UNKNOWN
     Route: 048
     Dates: end: 20080412

REACTIONS (1)
  - WEIGHT DECREASED [None]
